FAERS Safety Report 18540819 (Version 1)
Quarter: 2020Q4

REPORT INFORMATION
  Report Type: Report from Study
  Country: JP (occurrence: JP)
  Receive Date: 20201124
  Receipt Date: 20201124
  Transmission Date: 20210114
  Serious: Yes (Other)
  Sender: FDA-Public Use
  Company Number: JP-TEVA-2020-JP-1852491

PATIENT
  Age: 77 Year
  Sex: Female

DRUGS (34)
  1. BENDAMUSTINE HYDROCHLORIDE. [Suspect]
     Active Substance: BENDAMUSTINE HYDROCHLORIDE
     Indication: DIFFUSE LARGE B-CELL LYMPHOMA
     Dosage: 120 MG, CYCLIC (CYCLE 1)
     Route: 042
     Dates: start: 20190326, end: 20190326
  2. POLATUZUMAB VEDOTIN. [Suspect]
     Active Substance: POLATUZUMAB VEDOTIN
     Dosage: 80 MG, CYCLIC (CYCLE 2)
     Route: 042
     Dates: start: 20190416, end: 20190416
  3. BONALON [Concomitant]
     Active Substance: ALENDRONATE SODIUM
     Indication: OSTEOPOROSIS
     Route: 048
     Dates: start: 20191023
  4. SODIUM PICOSULFATE [Concomitant]
     Active Substance: SODIUM PICOSULFATE
     Indication: CONSTIPATION
     Route: 048
     Dates: start: 20191108
  5. DEPAS [ETIZOLAM] [Concomitant]
     Active Substance: ETIZOLAM
     Indication: INSOMNIA
     Route: 048
     Dates: start: 20191120
  6. POLATUZUMAB VEDOTIN. [Suspect]
     Active Substance: POLATUZUMAB VEDOTIN
     Indication: DIFFUSE LARGE B-CELL LYMPHOMA
     Dosage: 80 MG, CYCLIC (CYCLE 1)
     Route: 042
     Dates: start: 20190326, end: 20190326
  7. LANSOPRAZOLE. [Concomitant]
     Active Substance: LANSOPRAZOLE
     Indication: GASTRITIS PROPHYLAXIS
     Route: 048
     Dates: start: 20191023
  8. BENDAMUSTINE HYDROCHLORIDE. [Suspect]
     Active Substance: BENDAMUSTINE HYDROCHLORIDE
     Dosage: 120 MG, CYCLIC (CYCLE 11)
     Route: 042
     Dates: start: 20190711, end: 20190711
  9. RITUXIMAB. [Suspect]
     Active Substance: RITUXIMAB
     Dosage: 500 MG, CYCLIC (CYCLE 3)
     Route: 041
     Dates: start: 20190509, end: 20190509
  10. BENDAMUSTINE HYDROCHLORIDE. [Suspect]
     Active Substance: BENDAMUSTINE HYDROCHLORIDE
     Dosage: 120 MG, CYCLIC (CYCLE 2)
     Route: 042
     Dates: start: 20190327, end: 20190327
  11. BENDAMUSTINE HYDROCHLORIDE. [Suspect]
     Active Substance: BENDAMUSTINE HYDROCHLORIDE
     Dosage: 120 MG, CYCLIC (CYCLE 7)
     Route: 042
     Dates: start: 20190530, end: 20190530
  12. POLATUZUMAB VEDOTIN. [Suspect]
     Active Substance: POLATUZUMAB VEDOTIN
     Dosage: 80 MG, CYCLIC (CYCLE 6)
     Route: 042
     Dates: start: 20190711, end: 20190711
  13. MAGNESIUM OXIDE. [Concomitant]
     Active Substance: MAGNESIUM OXIDE
     Indication: CONSTIPATION
     Route: 048
     Dates: start: 2016
  14. ACICLOVIR [Concomitant]
     Active Substance: ACYCLOVIR
     Indication: ANTIVIRAL PROPHYLAXIS
     Route: 048
     Dates: start: 20190808
  15. BENDAMUSTINE HYDROCHLORIDE. [Suspect]
     Active Substance: BENDAMUSTINE HYDROCHLORIDE
     Dosage: 120 MG, CYCLIC (CYCLE 5)
     Route: 042
     Dates: start: 20190509, end: 20190509
  16. BENDAMUSTINE HYDROCHLORIDE. [Suspect]
     Active Substance: BENDAMUSTINE HYDROCHLORIDE
     Dosage: 120 MG, CYCLIC (CYCLE 8)
     Route: 042
     Dates: start: 20190531, end: 20190531
  17. BENDAMUSTINE HYDROCHLORIDE. [Suspect]
     Active Substance: BENDAMUSTINE HYDROCHLORIDE
     Dosage: 120 MG, CYCLIC (CYCLE 9)
     Route: 042
     Dates: start: 20190620, end: 20190620
  18. BENDAMUSTINE HYDROCHLORIDE. [Suspect]
     Active Substance: BENDAMUSTINE HYDROCHLORIDE
     Dosage: 120 MG, CYCLIC (CYCLE 10)
     Route: 042
     Dates: start: 20190621, end: 20190621
  19. POLATUZUMAB VEDOTIN. [Suspect]
     Active Substance: POLATUZUMAB VEDOTIN
     Dosage: 80 MG, CYCLIC (CYCLE 5)
     Route: 042
     Dates: start: 20190620, end: 20190620
  20. RITUXIMAB. [Suspect]
     Active Substance: RITUXIMAB
     Dosage: 500 MG, CYCLIC (CYCLE 2)
     Route: 041
     Dates: start: 20190416, end: 20190416
  21. RITUXIMAB. [Suspect]
     Active Substance: RITUXIMAB
     Dosage: 500 MG, CYCLIC (CYCLE 4)
     Route: 041
     Dates: start: 20190530, end: 20190530
  22. RITUXIMAB. [Suspect]
     Active Substance: RITUXIMAB
     Dosage: 500 MG, CYCLIC (CYCLE 5)
     Route: 041
     Dates: start: 20190620, end: 20190620
  23. DAIPHEN [Concomitant]
     Active Substance: SULFAMETHOXAZOLE\TRIMETHOPRIM
     Indication: INFECTION PROPHYLAXIS
     Dosage: (1 IN 2 DAYS), EVERY OTHER DAY
     Route: 048
     Dates: start: 20191016
  24. SELTOUCH [Concomitant]
     Active Substance: FELBINAC
     Indication: BACK PAIN
     Route: 062
     Dates: start: 20190926
  25. POLATUZUMAB VEDOTIN. [Suspect]
     Active Substance: POLATUZUMAB VEDOTIN
     Dosage: 80 MG, CYCLIC (CYCLE 4)
     Route: 042
     Dates: start: 20190530, end: 20190530
  26. FLUNITRAZEPAM [Concomitant]
     Active Substance: FLUNITRAZEPAM
     Indication: INSOMNIA
     Route: 048
     Dates: start: 20190902
  27. RITUXIMAB. [Suspect]
     Active Substance: RITUXIMAB
     Indication: DIFFUSE LARGE B-CELL LYMPHOMA
     Dosage: 500 MG, CYCLIC (CYCLE 1)
     Route: 041
     Dates: start: 20190325, end: 20190325
  28. RITUXIMAB. [Suspect]
     Active Substance: RITUXIMAB
     Dosage: 500 MG, CYCLIC (CYCLE 6)
     Route: 041
     Dates: start: 20190711, end: 20190711
  29. BENDAMUSTINE HYDROCHLORIDE. [Suspect]
     Active Substance: BENDAMUSTINE HYDROCHLORIDE
     Dosage: 120 MG, CYCLIC (CYCLE 3)
     Route: 042
     Dates: start: 20190416, end: 20190416
  30. BENDAMUSTINE HYDROCHLORIDE. [Suspect]
     Active Substance: BENDAMUSTINE HYDROCHLORIDE
     Dosage: 120 MG, CYCLIC (CYCLE 4)
     Route: 042
     Dates: start: 20190417, end: 20190417
  31. BENDAMUSTINE HYDROCHLORIDE. [Suspect]
     Active Substance: BENDAMUSTINE HYDROCHLORIDE
     Dosage: 120 MG, CYCLIC (CYCLE 6)
     Route: 042
     Dates: start: 20190510, end: 20190510
  32. BENDAMUSTINE HYDROCHLORIDE. [Suspect]
     Active Substance: BENDAMUSTINE HYDROCHLORIDE
     Dosage: 120 MG, CYCLIC (CYCLE 12)
     Route: 042
     Dates: start: 20190712, end: 20190712
  33. POLATUZUMAB VEDOTIN. [Suspect]
     Active Substance: POLATUZUMAB VEDOTIN
     Dosage: 80 MG, CYCLIC (CYCLE 3)
     Route: 042
     Dates: start: 20190509, end: 20190509
  34. ZOLPIDEM TARTRATE. [Concomitant]
     Active Substance: ZOLPIDEM TARTRATE
     Indication: INSOMNIA
     Route: 048
     Dates: start: 20190902

REACTIONS (3)
  - Neutrophil count decreased [Recovered/Resolved]
  - White blood cell count decreased [Recovered/Resolved]
  - Lymphoproliferative disorder [Not Recovered/Not Resolved]

NARRATIVE: CASE EVENT DATE: 20190606
